FAERS Safety Report 6876048-4 (Version None)
Quarter: 2010Q3

REPORT INFORMATION
  Report Type: 
  Country: None (occurrence: None)
  Receive Date: 20100727
  Receipt Date: 20100716
  Transmission Date: 20110219
  Serious: Yes (Life-Threatening, Hospitalization)
  Sender: FDA-Public Use
  Company Number: US-MERCK-1005USA04515

PATIENT
  Age: 64 Year
  Sex: Female

DRUGS (9)
  1. HYZAAR [Suspect]
     Indication: HYPERTENSION
     Route: 048
     Dates: end: 20080218
  2. CLONIDINE [Concomitant]
     Route: 065
  3. METOPROLOL [Concomitant]
     Route: 065
  4. BUSPIRONE HYDROCHLORIDE [Concomitant]
     Route: 065
  5. SPIRONOLACTONE [Concomitant]
     Route: 065
  6. PLAVIX [Concomitant]
     Route: 065
  7. FELODIPINE [Concomitant]
     Route: 065
  8. SIMVASTATIN [Concomitant]
     Route: 048
  9. METFORMIN [Concomitant]
     Route: 065

REACTIONS (1)
  - ACUTE MYOCARDIAL INFARCTION [None]
